FAERS Safety Report 4725822-9 (Version None)
Quarter: 2005Q3

REPORT INFORMATION
  Report Type: 
  Country: None (occurrence: None)
  Receive Date: 20050727
  Receipt Date: 20050718
  Transmission Date: 20060218
  Serious: Yes (Other)
  Sender: FDA-Public Use
  Company Number: 2005GB01397

PATIENT
  Age: 71 Year
  Sex: Female

DRUGS (8)
  1. ATENOLOL [Suspect]
     Route: 048
  2. VERAPAMIL [Suspect]
     Route: 048
  3. FUROSEMIDE [Concomitant]
     Route: 048
  4. ESOMEPRAZOLE [Concomitant]
     Route: 048
  5. CLOPIDOGREL BISULFATE [Concomitant]
     Route: 048
  6. AMLODIPINE [Concomitant]
     Route: 048
  7. SIMVASTATIN [Concomitant]
     Route: 048
  8. ITRACONAZOLE [Concomitant]
     Route: 048

REACTIONS (2)
  - BRADYCARDIA [None]
  - LOSS OF CONSCIOUSNESS [None]
